FAERS Safety Report 7302168-6 (Version None)
Quarter: 2011Q1

REPORT INFORMATION
  Report Type: 
  Country: None (occurrence: None)
  Receive Date: 20110218
  Receipt Date: 20110207
  Transmission Date: 20110831
  Serious: Yes (Other)
  Sender: FDA-Public Use
  Company Number: PHHY2011AU10296

PATIENT
  Age: 13 Year
  Sex: Female

DRUGS (5)
  1. MYCOPHENOLATE MOFETIL [Suspect]
     Indication: IMMUNOSUPPRESSION
  2. PREDNISOLONE [Suspect]
     Indication: IMMUNOSUPPRESSION
  3. CYCLOPHOSPHAMIDE [Suspect]
     Indication: IMMUNOSUPPRESSION
  4. TACROLIMUS [Suspect]
  5. RITUXIMAB [Suspect]
     Indication: IMMUNOSUPPRESSION

REACTIONS (7)
  - POSTERIOR REVERSIBLE ENCEPHALOPATHY SYNDROME [None]
  - VISUAL IMPAIRMENT [None]
  - GRAND MAL CONVULSION [None]
  - DRUG LEVEL ABOVE THERAPEUTIC [None]
  - NEUTROPENIC SEPSIS [None]
  - BLOOD PRESSURE INCREASED [None]
  - HEADACHE [None]
